FAERS Safety Report 7907610-5 (Version None)
Quarter: 2011Q4

REPORT INFORMATION
  Report Type: 
  Country: None (occurrence: None)
  Receive Date: 20111110
  Receipt Date: 20111107
  Transmission Date: 20120403
  Serious: Yes (Death)
  Sender: FDA-Public Use
  Company Number: PHHY2011MX098476

PATIENT
  Sex: Male

DRUGS (2)
  1. DIOVAN HCT [Suspect]
     Indication: HYPERTENSION
     Dosage: 1 DF DAILY
     Dates: start: 20091101
  2. AGGRENOX [Concomitant]
     Indication: THROMBOSIS
     Dosage: UNK
     Dates: start: 20091101

REACTIONS (2)
  - INFARCTION [None]
  - CEREBRAL HAEMORRHAGE [None]
